FAERS Safety Report 7021605-8 (Version None)
Quarter: 2010Q3

REPORT INFORMATION
  Report Type: 
  Country: None (occurrence: None)
  Receive Date: 20100928
  Receipt Date: 20100917
  Transmission Date: 20110219
  Serious: Yes (Life-Threatening, Hospitalization)
  Sender: FDA-Public Use
  Company Number: 2010AP002029

PATIENT
  Age: 32 Year
  Sex: Male

DRUGS (2)
  1. CITALOPRAM HYDROBROMIDE [Suspect]
     Indication: DEPRESSION
     Dosage: 20 MG; QD PO
     Route: 048
     Dates: start: 20100906
  2. ESCITALOPRAM [Suspect]
     Indication: DEPRESSION
     Dosage: 20 MG; QD PO
     Route: 048
     Dates: start: 20100906

REACTIONS (2)
  - OVERDOSE [None]
  - RHABDOMYOLYSIS [None]
